FAERS Safety Report 6158580-4 (Version None)
Quarter: 2009Q2

REPORT INFORMATION
  Report Type: 
  Country: None (occurrence: None)
  Receive Date: 20090408
  Receipt Date: 20090121
  Transmission Date: 20091009
  Serious: Yes (Death)
  Sender: FDA-Public Use
  Company Number: BMS-LI-2009-0031-V001

PATIENT
  Age: 39 Year
  Sex: Female

DRUGS (11)
  1. TRAZODONE HYDROCHLORIDE [Suspect]
  2. TRAMADOL HYDROCHLORIDE [Suspect]
  3. CARISOPRODOL [Suspect]
  4. DULOXETINE HYDROCHLORIDE [Suspect]
  5. FEXOFENADINE [Suspect]
  6. NAPROXEN [Suspect]
  7. CLONAZEPAM [Suspect]
  8. ALCOHOL [Suspect]
  9. THYROID PREPARATION [Suspect]
  10. ACETAMINOPOHEN AND HYDROCODONE [Suspect]
  11. OPIOID [Suspect]

REACTIONS (3)
  - CARDIAC ARREST [None]
  - COMPLETED SUICIDE [None]
  - RESPIRATORY ARREST [None]
